FAERS Safety Report 12429737 (Version 7)
Quarter: 2017Q4

REPORT INFORMATION
  Report Type: Report from Study
  Country: ES (occurrence: ES)
  Receive Date: 20160602
  Receipt Date: 20171126
  Transmission Date: 20180320
  Serious: Yes (Hospitalization)
  Sender: FDA-Public Use
  Company Number: ES-CELGENEUS-ESP-2016047587

PATIENT
  Age: 75 Year
  Sex: Male

DRUGS (8)
  1. GEMCITABINE [Suspect]
     Active Substance: GEMCITABINE\GEMCITABINE HYDROCHLORIDE
     Dosage: 1000 MILLIGRAM/SQ. METER
     Route: 041
     Dates: start: 20160511, end: 20160524
  2. GEMCITABINE [Suspect]
     Active Substance: GEMCITABINE\GEMCITABINE HYDROCHLORIDE
     Dosage: 1000 MILLIGRAM/SQ. METER
     Route: 041
     Dates: start: 20160601, end: 20160613
  3. GEMCITABINE [Suspect]
     Active Substance: GEMCITABINE\GEMCITABINE HYDROCHLORIDE
     Dosage: 600 MILLIGRAM/SQ. METER
     Route: 041
     Dates: start: 20160623
  4. ABRAXANE [Suspect]
     Active Substance: PACLITAXEL
     Indication: ADENOCARCINOMA PANCREAS
     Dosage: 125 MILLIGRAM/SQ. METER
     Route: 041
     Dates: start: 20160407, end: 20160414
  5. ABRAXANE [Suspect]
     Active Substance: PACLITAXEL
     Dosage: 75 MILLIGRAM/SQ. METER
     Route: 041
     Dates: start: 20160623
  6. ABRAXANE [Suspect]
     Active Substance: PACLITAXEL
     Dosage: 125 MILLIGRAM/SQ. METER
     Route: 041
     Dates: start: 20160601, end: 20160613
  7. ABRAXANE [Suspect]
     Active Substance: PACLITAXEL
     Dosage: 125 MILLIGRAM/SQ. METER
     Route: 041
     Dates: start: 20160511, end: 20160524
  8. GEMCITABINE [Suspect]
     Active Substance: GEMCITABINE\GEMCITABINE HYDROCHLORIDE
     Indication: ADENOCARCINOMA PANCREAS
     Dosage: 1000 MILLIGRAM/SQ. METER
     Route: 041
     Dates: start: 20160407, end: 20160414

REACTIONS (7)
  - Anaemia [Recovered/Resolved]
  - Thrombocytopenia [Recovered/Resolved]
  - Pyrexia [Recovered/Resolved]
  - Neutropenia [Recovered/Resolved]
  - Gastrointestinal haemorrhage [Recovered/Resolved]
  - Thrombocytopenia [Recovered/Resolved]
  - Gastrointestinal haemorrhage [Recovered/Resolved]

NARRATIVE: CASE EVENT DATE: 20160417
